FAERS Safety Report 6700968-4 (Version None)
Quarter: 2010Q2

REPORT INFORMATION
  Report Type: 
  Country: None (occurrence: None)
  Receive Date: 20100428
  Receipt Date: 20100421
  Transmission Date: 20101027
  Serious: Yes (Death)
  Sender: FDA-Public Use
  Company Number: US-ABBOTT-10P-163-0639324-00

PATIENT
  Age: 5 Year
  Sex: Male

DRUGS (3)
  1. SEVOFLURANE [Suspect]
     Indication: ANAESTHESIA
     Dosage: NOT REPORTED
  2. IOPAMIDOL [Suspect]
     Indication: ANAESTHESIA
     Dosage: 6ML TEST DOSE, FOUR MINUTES LATER 34ML
  3. SUCCINYLCHOLINE CHLORIDE [Suspect]
     Indication: ANAESTHESIA
     Dosage: NOT REPORTED
     Route: 042

REACTIONS (1)
  - ANAPHYLACTIC REACTION [None]
